FAERS Safety Report 22331323 (Version 1)
Quarter: 2023Q2

REPORT INFORMATION
  Report Type: Spontaneous
  Country: US (occurrence: None)
  Receive Date: 20230515
  Receipt Date: 20230515
  Transmission Date: 20230721
  Serious: Yes (Other)
  Sender: FDA-Public Use
  Company Number: None

PATIENT
  Age: 66 Year
  Sex: Female
  Weight: 81 kg

DRUGS (13)
  1. DICLOFENAC POTASSIUM [Suspect]
     Active Substance: DICLOFENAC POTASSIUM
     Indication: Migraine
     Dosage: OTHER QUANTITY : 1 TABLET(S);?FREQUENCY : AS NEEDED;?
     Route: 048
     Dates: start: 20230218, end: 20230514
  2. NADOLOL [Concomitant]
     Active Substance: NADOLOL
  3. CANDESARTAN [Concomitant]
     Active Substance: CANDESARTAN
  4. PREVACID [Concomitant]
     Active Substance: LANSOPRAZOLE
  5. PEPCID [Concomitant]
     Active Substance: FAMOTIDINE
  6. DICLOFENAC POTASSIUM [Concomitant]
     Active Substance: DICLOFENAC POTASSIUM
  7. NARATRIPTAN [Concomitant]
     Active Substance: NARATRIPTAN HYDROCHLORIDE
  8. ZOFRAN [Concomitant]
     Active Substance: ONDANSETRON HYDROCHLORIDE
  9. FIORICET [Concomitant]
     Active Substance: ACETAMINOPHEN\BUTALBITAL\CAFFEINE
  10. VITAMINS [Concomitant]
     Active Substance: VITAMINS
  11. vitamins D [Concomitant]
  12. VITAMINS C [Concomitant]
  13. B2 [Concomitant]

REACTIONS (6)
  - Throat tightness [None]
  - Dysphagia [None]
  - Dysphonia [None]
  - Hypersensitivity [None]
  - Drug ineffective [None]
  - Product substitution issue [None]

NARRATIVE: CASE EVENT DATE: 20230514
